FAERS Safety Report 8284158-2 (Version None)
Quarter: 2012Q2

REPORT INFORMATION
  Report Type: 
  Country: None (occurrence: None)
  Receive Date: 20120413
  Receipt Date: 20111007
  Transmission Date: 20120825
  Serious: No
  Sender: FDA-Public Use
  Company Number: US-ASTRAZENECA-2011SE38745

PATIENT
  Age: 47 Year
  Sex: Male

DRUGS (2)
  1. BENTYL [Concomitant]
  2. NEXIUM [Suspect]
     Route: 048

REACTIONS (1)
  - TOOTH EXTRACTION [None]
